FAERS Safety Report 16437956 (Version 1)
Quarter: 2019Q2

REPORT INFORMATION
  Report Type: Spontaneous
  Country: GB (occurrence: GB)
  Receive Date: 20190617
  Receipt Date: 20190617
  Transmission Date: 20190711
  Serious: Yes (Other)
  Sender: FDA-Public Use
  Company Number: GB-TEVA-2019-GB-1063255

PATIENT
  Age: 78 Year
  Sex: Female
  Weight: 61 kg

DRUGS (7)
  1. GAVISCON ADVANCE [Concomitant]
     Active Substance: POTASSIUM BICARBONATE\SODIUM ALGINATE
     Dosage: WHEN REQUIRED.
     Dates: start: 20171110
  2. LEVOTHYROXINE SODIUM. [Concomitant]
     Active Substance: LEVOTHYROXINE SODIUM
     Dosage: 25 MICROGRAM DAILY;
     Dates: start: 20170703
  3. DORZOLAMIDE [Concomitant]
     Active Substance: DORZOLAMIDE
     Dosage: 4 GTT DAILY; ONE IN EACH EYE
     Route: 050
     Dates: start: 20170703
  4. RANITIDINE. [Concomitant]
     Active Substance: RANITIDINE
     Dosage: 150 MILLIGRAM DAILY;
     Dates: start: 20171110
  5. BIMATOPROST. [Concomitant]
     Active Substance: BIMATOPROST
     Dosage: 1 GTT DAILY; INTO AFFECTED EYE IN THE EVENING. 100MCG/ML
     Route: 050
     Dates: start: 20170703
  6. OMEPRAZOLE. [Suspect]
     Active Substance: OMEPRAZOLE
     Indication: DYSPEPSIA
     Dates: start: 20171109, end: 20171110
  7. TIMOLOL. [Concomitant]
     Active Substance: TIMOLOL
     Dosage: 4 GTT DAILY; ONE DROP EACH EYE
     Route: 050
     Dates: start: 20170703

REACTIONS (1)
  - Mouth ulceration [Recovering/Resolving]

NARRATIVE: CASE EVENT DATE: 20171109
